FAERS Safety Report 26121233 (Version 1)
Quarter: 2025Q4

REPORT INFORMATION
  Report Type: Spontaneous
  Country: CA (occurrence: CA)
  Receive Date: 20251204
  Receipt Date: 20251204
  Transmission Date: 20260117
  Serious: Yes (Other)
  Sender: BAUSCH AND LOMB
  Company Number: CA-MLMSERVICE-20210928-3121297-1

PATIENT
  Age: 11 Year
  Sex: Male

DRUGS (8)
  1. DEXAMETHASONE\TOBRAMYCIN [Suspect]
     Active Substance: DEXAMETHASONE\TOBRAMYCIN
     Indication: Blepharitis
     Dosage: (TOBRAMYCIN 0.3%/DEXAMETHASONE 0.1%)
     Route: 061
  2. DEXAMETHASONE\TOBRAMYCIN [Suspect]
     Active Substance: DEXAMETHASONE\TOBRAMYCIN
     Dosage: FOUR TIMES DAILY
     Route: 065
  3. DEXAMETHASONE\TOBRAMYCIN [Suspect]
     Active Substance: DEXAMETHASONE\TOBRAMYCIN
     Dosage: DOSE DECREASED
     Route: 065
  4. POVIDONE-IODINE [Suspect]
     Active Substance: POVIDONE-IODINE
     Indication: Product used for unknown indication
     Dosage: INSTILLED IN THE CONJUNCTIVAL SAC
  5. OLOPATADINE [Concomitant]
     Active Substance: OLOPATADINE
     Indication: Blepharitis
     Route: 061
  6. TACROLIMUS [Concomitant]
     Active Substance: TACROLIMUS
     Indication: Blepharitis
     Dosage: 0.1 % OINTMENT TO THE SKIN
  7. ATROPINE [Concomitant]
     Active Substance: ATROPINE
     Indication: Product used for unknown indication
  8. TETRACAINE [Concomitant]
     Active Substance: TETRACAINE
     Indication: Product used for unknown indication
     Dosage: (INSTILLED)

REACTIONS (1)
  - Pathogen resistance [Recovered/Resolved]
